FAERS Safety Report 8471600 (Version 3)
Quarter: 2013Q1

REPORT INFORMATION
  Report Type: Spontaneous
  Country: US (occurrence: US)
  Receive Date: 20120322
  Receipt Date: 20130204
  Transmission Date: 20140127
  Serious: Yes (Hospitalization, Other)
  Sender: FDA-Public Use
  Company Number: US-PFIZER INC-2012071439

PATIENT
  Age: 70 Year
  Sex: Male

DRUGS (9)
  1. SUTENT [Suspect]
     Indication: METASTATIC RENAL CELL CARCINOMA
     Dosage: 50 MG, 1X/DAY
     Route: 048
     Dates: start: 201010, end: 201110
  2. SUTENT [Suspect]
     Dosage: 25 MG, 1X/DAY
     Route: 048
     Dates: start: 201110, end: 2011
  3. SUTENT [Suspect]
     Dosage: 37.5 MG, 1X/DAY, FOUR WEEKS ON, TWO WEEKS OFF
     Route: 048
     Dates: start: 2011
  4. LOMOTIL [Concomitant]
     Indication: DIARRHOEA
     Dosage: UNK
     Dates: start: 2010
  5. DARIFENACIN [Concomitant]
     Indication: PAIN
     Dosage: UNK
  6. DARIFENACIN [Concomitant]
     Indication: MICTURITION URGENCY
  7. OXYBUTYNIN [Concomitant]
     Indication: PAIN
     Dosage: UNK
  8. OXYBUTYNIN [Concomitant]
     Indication: MICTURITION URGENCY
  9. IMODIUM A-D [Concomitant]
     Indication: DIARRHOEA
     Dosage: UNK
     Dates: start: 2011

REACTIONS (17)
  - Loss of consciousness [Recovered/Resolved]
  - Malaise [Unknown]
  - Leukopenia [Unknown]
  - Dehydration [Unknown]
  - Diarrhoea [Unknown]
  - Nausea [Unknown]
  - Vomiting [Unknown]
  - Haemoglobin decreased [Unknown]
  - Infection [Unknown]
  - Hypertension [Unknown]
  - Feeling abnormal [Recovered/Resolved]
  - Gait disturbance [Recovering/Resolving]
  - Tinnitus [Unknown]
  - Hearing impaired [Unknown]
  - Respiratory disorder [Unknown]
  - Arthralgia [Recovered/Resolved]
  - Arthralgia [Recovered/Resolved]
